APPROVED DRUG PRODUCT: ASTEPRO
Active Ingredient: AZELASTINE HYDROCHLORIDE
Strength: 0.137MG/SPRAY **Federal Register determination that product was not discontinued or withdrawn for safety or effectiveness reasons**
Dosage Form/Route: SPRAY, METERED;NASAL
Application: N022203 | Product #001
Applicant: VIATRIS SPECIALTY LLC
Approved: Oct 15, 2008 | RLD: Yes | RS: No | Type: DISCN

PATENTS:
Patent 8071073 | Expires: Jun 4, 2028